FAERS Safety Report 25386544 (Version 1)
Quarter: 2025Q2

REPORT INFORMATION
  Report Type: Spontaneous
  Country: US (occurrence: US)
  Receive Date: 20250602
  Receipt Date: 20250602
  Transmission Date: 20250717
  Serious: No
  Sender: SANOFI AVENTIS
  Company Number: US-SA-2025SA155747

PATIENT
  Sex: Female
  Weight: 79.37 kg

DRUGS (5)
  1. DUPIXENT [Suspect]
     Active Substance: DUPILUMAB
     Indication: Dermatitis atopic
     Dosage: 300 MG, QOW
     Route: 058
     Dates: end: 20250519
  2. RESTASIS [Concomitant]
     Active Substance: CYCLOSPORINE
  3. TACROLIMUS [Concomitant]
     Active Substance: TACROLIMUS
  4. ALLEGRA ALLERGY [Concomitant]
     Active Substance: FEXOFENADINE HYDROCHLORIDE
  5. ADBRY [Concomitant]
     Active Substance: TRALOKINUMAB-LDRM

REACTIONS (5)
  - Weight increased [Unknown]
  - Lacrimation increased [Unknown]
  - Corneal cross linking [Unknown]
  - Eye irritation [Unknown]
  - Eye pruritus [Unknown]
